FAERS Safety Report 4462235-1 (Version None)
Quarter: 2004Q3

REPORT INFORMATION
  Report Type: 
  Country: None (occurrence: None)
  Receive Date: 20040929
  Receipt Date: 20020611
  Transmission Date: 20050211
  Serious: Yes (Other)
  Sender: FDA-Public Use
  Company Number: US-GLAXOSMITHKLINE-A0371325A

PATIENT
  Age: 24 Year
  Sex: Female

DRUGS (1)
  1. PAXIL [Suspect]
     Indication: DEPRESSION
     Route: 048
     Dates: start: 20000101, end: 20020602

REACTIONS (7)
  - DEPENDENCE [None]
  - DRUG WITHDRAWAL SYNDROME [None]
  - EAR PAIN [None]
  - MENIERE'S DISEASE [None]
  - SENSATION OF PRESSURE IN EAR [None]
  - TINNITUS [None]
  - TREATMENT NONCOMPLIANCE [None]
